FAERS Safety Report 11431808 (Version 5)
Quarter: 2015Q3

REPORT INFORMATION
  Report Type: Spontaneous
  Country: US (occurrence: US)
  Receive Date: 20150828
  Receipt Date: 20150928
  Transmission Date: 20151125
  Serious: Yes (Other)
  Sender: FDA-Public Use
  Company Number: US-HORIZON-RAV-0066-2015

PATIENT
  Age: 12 Year
  Sex: Female

DRUGS (2)
  1. RAVICTI [Suspect]
     Active Substance: GLYCEROL PHENYLBUTYRATE
     Indication: ARGINASE DEFICIENCY
     Dosage: 4 ML THREE TIMES DAILY
  2. UCD TRIO [Concomitant]
     Indication: ARGINASE DEFICIENCY

REACTIONS (5)
  - Vomiting [Recovering/Resolving]
  - Lip discolouration [Recovering/Resolving]
  - Malaise [Recovering/Resolving]
  - Nausea [Recovering/Resolving]
  - Weight decreased [Recovering/Resolving]
